FAERS Safety Report 19904094 (Version 1)
Quarter: 2021Q4

REPORT INFORMATION
  Report Type: Spontaneous
  Country: NL (occurrence: NL)
  Receive Date: 20211001
  Receipt Date: 20211001
  Transmission Date: 20220303
  Serious: Yes (Hospitalization)
  Sender: FDA-Public Use
  Company Number: None

PATIENT
  Age: 55 Year
  Sex: Female
  Weight: 75 kg

DRUGS (7)
  1. CISPLATIN [Suspect]
     Active Substance: CISPLATIN
     Indication: Lung neoplasm malignant
     Dosage: 145 MILLIGRAM, QD
     Dates: start: 20210511
  2. ETOPOSIDE [Suspect]
     Active Substance: ETOPOSIDE
     Indication: Lung neoplasm malignant
     Dosage: 190 MILLIGRAM, QD (12-5-2021 AND 13-5-2021)
     Dates: start: 20210513
  3. PFIZER-BIONTECH COVID-19 VACCINE [Suspect]
     Active Substance: TOZINAMERAN
     Indication: COVID-19 immunisation
     Dosage: UNK
     Dates: start: 20210510
  4. METOCLOPRAMIDE [Concomitant]
     Active Substance: METOCLOPRAMIDE
     Dosage: 10 MILLIGRAM
     Route: 065
  5. DEXAMETHASONE [Concomitant]
     Active Substance: DEXAMETHASONE
     Dosage: 4 MILLIGRAM
  6. OMEPRAZOLE [Concomitant]
     Active Substance: OMEPRAZOLE
     Dosage: MAAGSAPRESISTENTE CAPSULE, 20 MG (MILLIGRAM)
  7. APREPITANT [Concomitant]
     Active Substance: APREPITANT
     Dosage: CAPSULE, 125+80 MG (MILLIGRAM)

REACTIONS (2)
  - Aortic thrombosis [Not Recovered/Not Resolved]
  - Peripheral artery thrombosis [Not Recovered/Not Resolved]

NARRATIVE: CASE EVENT DATE: 20210515
